FAERS Safety Report 5809082-3 (Version None)
Quarter: 2008Q3

REPORT INFORMATION
  Report Type: 
  Country: None (occurrence: None)
  Receive Date: 20080714
  Receipt Date: 20080709
  Transmission Date: 20090109
  Serious: Yes (Hospitalization)
  Sender: FDA-Public Use
  Company Number: JP-ABBOTT-08P-087-0460988-00

PATIENT
  Age: 74 Year
  Sex: Male

DRUGS (3)
  1. CLARITHROMYCIN [Suspect]
     Indication: HELICOBACTER INFECTION
     Dosage: NOT REPORTED
     Dates: start: 20080104
  2. LANSOPRAZOLE [Suspect]
     Indication: HELICOBACTER INFECTION
     Dates: start: 20080104
  3. AMOXICILLIN [Suspect]
     Indication: HELICOBACTER INFECTION
     Dosage: NOT REPORTED
     Dates: start: 20080104

REACTIONS (2)
  - ALTERED STATE OF CONSCIOUSNESS [None]
  - HYPOGLYCAEMIA [None]
